FAERS Safety Report 17349077 (Version 3)
Quarter: 2025Q4

REPORT INFORMATION
  Report Type: Spontaneous
  Country: EU (occurrence: EU)
  Receive Date: 20200130
  Receipt Date: 20251022
  Transmission Date: 20260118
  Serious: Yes (Death, Life-Threatening, Hospitalization, Other)
  Sender: PFIZER
  Company Number: EU-MLMSERVICE-20200116-2129030-1

PATIENT
  Age: 58 Year
  Sex: Female

DRUGS (11)
  1. METHYLPREDNISOLONE [Suspect]
     Active Substance: METHYLPREDNISOLONE
     Indication: Immunosuppressant drug therapy
     Dosage: UNK (LOW DOSE)
     Route: 048
     Dates: start: 2015, end: 2015
  2. METHYLPREDNISOLONE [Suspect]
     Active Substance: METHYLPREDNISOLONE
     Indication: Pancytopenia
  3. METHYLPREDNISOLONE [Suspect]
     Active Substance: METHYLPREDNISOLONE
     Indication: Aplastic anaemia
  4. CYTARABINE [Suspect]
     Active Substance: CYTARABINE
     Indication: Acute myeloid leukaemia
     Dosage: UNK, CYCLIC (2 CYCLICAL), DAC
     Dates: start: 2015
  5. CYTARABINE [Suspect]
     Active Substance: CYTARABINE
     Dosage: UNK, CYCLIC (2 CYCLICAL), CLAG-M
     Dates: start: 201504, end: 2015
  6. CLADRIBINE [Suspect]
     Active Substance: CLADRIBINE
     Indication: Acute myeloid leukaemia
     Dosage: UNK, CYCLIC (CYCLICAL), DAC
     Dates: start: 201504
  7. CLADRIBINE [Suspect]
     Active Substance: CLADRIBINE
     Dosage: UNK, CYCLIC 2 (CYCLICAL), CLAG-M
     Dates: start: 2015, end: 2015
  8. MITOXANTRONE [Suspect]
     Active Substance: MITOXANTRONE HYDROCHLORIDE
     Indication: Acute myeloid leukaemia
     Dosage: UNK, CYCLIC 2 (CYCLICAL), CLAG-M
     Dates: start: 2015, end: 2015
  9. GRANULOCYTE COLONY-STIMULATING FACTOR NOS [Suspect]
     Active Substance: GRANULOCYTE COLONY-STIMULATING FACTOR NOS
     Indication: Acute myeloid leukaemia
     Dosage: UNK, CYCLIC 2 (CYCLICAL), CLAG-M
     Dates: start: 2015, end: 2015
  10. DAUNORUBICIN [Suspect]
     Active Substance: DAUNORUBICIN
     Indication: Acute myeloid leukaemia
     Dosage: UNK, CYCLIC (CYCLICAL), DAC
     Dates: start: 201504, end: 2015
  11. POSACONAZOLE [Concomitant]
     Active Substance: POSACONAZOLE
     Indication: Antifungal prophylaxis
     Dosage: UNK
     Dates: start: 2015, end: 2015

REACTIONS (21)
  - Escherichia infection [Fatal]
  - Mucormycosis [Fatal]
  - Mucormycosis [Fatal]
  - Sepsis [Fatal]
  - Candida infection [Unknown]
  - Transaminases increased [Unknown]
  - Splenomegaly [Unknown]
  - Haematoma [Unknown]
  - Tachycardia [Unknown]
  - Disturbance in attention [Unknown]
  - Pleural effusion [Unknown]
  - Eschar [Unknown]
  - Skin necrosis [Unknown]
  - Loss of consciousness [Unknown]
  - Dehydration [Unknown]
  - Agranulocytosis [Unknown]
  - Ketoacidosis [Unknown]
  - Aplastic anaemia [Unknown]
  - Hyperglycaemia [Unknown]
  - Decreased appetite [Unknown]
  - General physical health deterioration [Unknown]

NARRATIVE: CASE EVENT DATE: 20150101
